FAERS Safety Report 8398376-6 (Version None)
Quarter: 2012Q2

REPORT INFORMATION
  Report Type: 
  Country: None (occurrence: None)
  Receive Date: 20120531
  Receipt Date: 20120529
  Transmission Date: 20120825
  Serious: Yes (Other)
  Sender: FDA-Public Use
  Company Number: JP-PFIZER INC-2012121845

PATIENT
  Age: 47 Year
  Sex: Male
  Weight: 80 kg

DRUGS (3)
  1. BOUFUUTSUUSHOUSAN [Concomitant]
     Indication: OBESITY
     Dosage: 7.5 G, 3X/DAY
     Route: 048
     Dates: start: 20111209
  2. SALMETEROL XINAFOATE [Concomitant]
     Indication: ASTHMA
     Dosage: UNK, 2X/DAY
     Dates: start: 20120316
  3. VARENICLINE TARTRATE [Suspect]
     Indication: SMOKING CESSATION THERAPY
     Dosage: 1 MG DAILY
     Dates: start: 20120514, end: 20120517

REACTIONS (1)
  - ALOPECIA [None]
